FAERS Safety Report 6867059-3 (Version None)
Quarter: 2010Q3

REPORT INFORMATION
  Report Type: 
  Country: None (occurrence: None)
  Receive Date: 20100722
  Receipt Date: 20100716
  Transmission Date: 20110219
  Serious: Yes (Death, Hospitalization)
  Sender: FDA-Public Use
  Company Number: A0787537A

PATIENT
  Age: 68 Year
  Sex: Male

DRUGS (2)
  1. AVANDIA [Suspect]
     Indication: DIABETES MELLITUS
     Dosage: 4MG UNKNOWN
     Route: 048
     Dates: start: 20050510, end: 20060430
  2. AVANDAMET [Suspect]
     Route: 048
     Dates: start: 20040715, end: 20070528

REACTIONS (1)
  - DEATH [None]
